FAERS Safety Report 7347072-2 (Version None)
Quarter: 2011Q1

REPORT INFORMATION
  Report Type: 
  Country: None (occurrence: None)
  Receive Date: 20110311
  Receipt Date: 20110228
  Transmission Date: 20110831
  Serious: Yes (Other)
  Sender: FDA-Public Use
  Company Number: US-ELI_LILLY_AND_COMPANY-US201103000414

PATIENT
  Sex: Female

DRUGS (1)
  1. ADCIRCA [Suspect]

REACTIONS (2)
  - BLINDNESS [None]
  - CONFUSIONAL STATE [None]
